FAERS Safety Report 8535757-1 (Version None)
Quarter: 2012Q3

REPORT INFORMATION
  Report Type: 
  Country: None (occurrence: None)
  Receive Date: 20120725
  Receipt Date: 20120717
  Transmission Date: 20120928
  Serious: Yes (Hospitalization, Other)
  Sender: FDA-Public Use
  Company Number: CH-BAYER-2012-070705

PATIENT
  Age: 17 Year
  Sex: Male

DRUGS (1)
  1. PRAZIQUANTEL [Suspect]
     Indication: SCHISTOSOMIASIS
     Dosage: 60 MG/KG, UNK
     Route: 048
     Dates: start: 20110810

REACTIONS (3)
  - RESPIRATORY DISORDER [None]
  - PYREXIA [None]
  - RESPIRATORY FAILURE [None]
